FAERS Safety Report 21359957 (Version 1)
Quarter: 2022Q3

REPORT INFORMATION
  Report Type: Spontaneous
  Country: GR (occurrence: None)
  Receive Date: 20220921
  Receipt Date: 20220921
  Transmission Date: 20221026
  Serious: Yes (Disabling)
  Sender: FDA-Public Use
  Company Number: 2022A316683

PATIENT
  Age: 90 Year
  Sex: Female
  Weight: 55 kg

DRUGS (6)
  1. SEROQUEL [Suspect]
     Active Substance: QUETIAPINE FUMARATE
     Indication: Insomnia
     Dosage: 25.0MG UNKNOWN
     Route: 048
     Dates: start: 20220413, end: 20220414
  2. VALSIMIA [Concomitant]
     Indication: Hypertension
     Dosage: 10+160 MG
     Route: 048
  3. PROPAFENONE HCL [Concomitant]
     Active Substance: PROPAFENONE HYDROCHLORIDE
     Indication: Hypertension
     Dosage: 225.0MG UNKNOWN
     Route: 048
  4. GLOBEL [Concomitant]
     Indication: Hypertension
     Dosage: 75.0MG UNKNOWN
     Route: 048
  5. SEROPRAM [Concomitant]
     Indication: Depression
     Dosage: 20.0MG UNKNOWN
     Route: 048
  6. NEBIVOLOL HYDROCHLORIDE [Concomitant]
     Active Substance: NEBIVOLOL HYDROCHLORIDE
     Indication: Hypertension
     Dosage: 5.0MG UNKNOWN
     Route: 048

REACTIONS (3)
  - Pain in extremity [Recovered/Resolved]
  - Muscular weakness [Recovered/Resolved]
  - Gait inability [Recovered/Resolved]

NARRATIVE: CASE EVENT DATE: 20220413
